FAERS Safety Report 23972673 (Version 1)
Quarter: 2024Q2

REPORT INFORMATION
  Report Type: Spontaneous
  Country: US (occurrence: US)
  Receive Date: 20240613
  Receipt Date: 20240613
  Transmission Date: 20240715
  Serious: Yes (Life-Threatening, Hospitalization, Other)
  Sender: FDA-Public Use
  Company Number: US-PFIZER INC-PV202400076342

PATIENT
  Age: 78 Year
  Sex: Female

DRUGS (22)
  1. KETAMINE HYDROCHLORIDE [Suspect]
     Active Substance: KETAMINE HYDROCHLORIDE
     Indication: Depression
     Dosage: 100 MG
  2. KETAMINE HYDROCHLORIDE [Suspect]
     Active Substance: KETAMINE HYDROCHLORIDE
     Dosage: 100 MG (WEEK 16 POST-DISCHARGE AND POST-OUTPATIENT ECT #13)
  3. DULOXETINE [Concomitant]
     Active Substance: DULOXETINE
     Dosage: 30 MG
  4. DULOXETINE [Concomitant]
     Active Substance: DULOXETINE
     Dosage: 60 MG, 1X/DAY
  5. DULOXETINE [Concomitant]
     Active Substance: DULOXETINE
     Dosage: 90 MG, 1X/DAY (RESTARTED, POST-DISCHARGE/8 D BEFORE THE NEXT ECT)
  6. ALPRAZOLAM [Concomitant]
     Active Substance: ALPRAZOLAM
     Dosage: 0.25 MG, 3X/DAY
  7. ALPRAZOLAM [Concomitant]
     Active Substance: ALPRAZOLAM
     Dosage: 0.5 MG, 3X/DAY (DAYS 2 AND 3)
  8. MIRTAZAPINE [Concomitant]
     Active Substance: MIRTAZAPINE
     Dosage: 15 MG
  9. MIRTAZAPINE [Concomitant]
     Active Substance: MIRTAZAPINE
     Dosage: 30 MG, 1X/DAY (NIGHTLY) DISCHARGED ON
  10. CARIPRAZINE [Concomitant]
     Active Substance: CARIPRAZINE
     Dosage: UNK
  11. CARIPRAZINE [Concomitant]
     Active Substance: CARIPRAZINE
     Dosage: TITRATED TO 30 MG, 1X/DAY (NIGHTLY)
  12. SIMVASTATIN [Concomitant]
     Active Substance: SIMVASTATIN
     Dosage: 40 MG, 1X/DAY (AT BEDTIME)
  13. LOSARTAN [Concomitant]
     Active Substance: LOSARTAN
     Dosage: 40 MG, 1X/DAY
  14. LEVOTHYROXINE [Concomitant]
     Active Substance: LEVOTHYROXINE\LEVOTHYROXINE SODIUM
     Dosage: 75 UG, 1X/DAY
  15. LORAZEPAM [Concomitant]
     Active Substance: LORAZEPAM
     Indication: Anxiety
     Dosage: 1 MG, 3X/DAY (LAST DOSE BEFORE 9 PM ON PRE-ECT DAYS)
  16. LORAZEPAM [Concomitant]
     Active Substance: LORAZEPAM
     Dosage: 0.5 MG, 2X/DAY
  17. LORAZEPAM [Concomitant]
     Active Substance: LORAZEPAM
     Dosage: 2 MG, 1X/DAY (IN 3 DIVIDED DOSES/(0.5 MG IN THE MORNING, 1 MG IN THE AFTERNOON AND 0.5 MG AT NIGHT)
  18. SUCCINYLCHOLINE CHLORIDE [Concomitant]
     Active Substance: SUCCINYLCHOLINE CHLORIDE
     Dosage: 120 MG (ECT #3)
  19. SUCCINYLCHOLINE CHLORIDE [Concomitant]
     Active Substance: SUCCINYLCHOLINE CHLORIDE
     Dosage: 80 MG (ECT #13)
  20. RISPERIDONE [Concomitant]
     Active Substance: RISPERIDONE
     Dosage: 0.5 MG, 1X/DAY (IN THE MORNING)
  21. RISPERIDONE [Concomitant]
     Active Substance: RISPERIDONE
     Dosage: 1 MG, 1X/DAY (NIGHTLY)
  22. METHOHEXITAL [Concomitant]
     Active Substance: METHOHEXITAL
     Dosage: UNK

REACTIONS (2)
  - Serotonin syndrome [Recovered/Resolved]
  - Off label use [Unknown]
